FAERS Safety Report 18302434 (Version 1)
Quarter: 2020Q3

REPORT INFORMATION
  Report Type: Spontaneous
  Country: SE (occurrence: SE)
  Receive Date: 20200923
  Receipt Date: 20200923
  Transmission Date: 20201103
  Serious: Yes (Other)
  Sender: FDA-Public Use
  Company Number: SE-PERRIGO-20SE013246

PATIENT
  Sex: Female
  Weight: 90.9 kg

DRUGS (5)
  1. NUTRIFLEX /07393601/ [Suspect]
     Active Substance: AMINO ACIDS\DEXTROSE\ELECTROLYTES NOS
     Indication: PARENTERAL NUTRITION
     Route: 051
  2. PARACETAMOL [Suspect]
     Active Substance: ACETAMINOPHEN
     Indication: PYREXIA
     Dosage: 1 G, QID
     Route: 065
     Dates: start: 20200802
  3. VEKLURY [Suspect]
     Active Substance: REMDESIVIR
     Dosage: 200 MG, ONCE
     Route: 042
     Dates: start: 20200805, end: 20200805
  4. CEFOTAXIME [Suspect]
     Active Substance: CEFOTAXIME SODIUM
     Indication: PRODUCT USED FOR UNKNOWN INDICATION
     Dosage: 1 G, TID
     Route: 042
     Dates: start: 20200731, end: 20200808
  5. VEKLURY [Suspect]
     Active Substance: REMDESIVIR
     Indication: COVID-19
     Dosage: 100 MG, QD
     Route: 042
     Dates: start: 20200806, end: 20200809

REACTIONS (2)
  - Transaminases increased [Recovered/Resolved]
  - Thrombophlebitis [Recovered/Resolved]

NARRATIVE: CASE EVENT DATE: 20200806
